FAERS Safety Report 6367263-7 (Version None)
Quarter: 2009Q3

REPORT INFORMATION
  Report Type: 
  Country: None (occurrence: None)
  Receive Date: 20090921
  Receipt Date: 20090915
  Transmission Date: 20100115
  Serious: Yes (Hospitalization)
  Sender: FDA-Public Use
  Company Number: FR-MERCK-0909FRA00040

PATIENT
  Age: 43 Year
  Sex: Male

DRUGS (10)
  1. PRIMAXIN [Suspect]
     Route: 041
     Dates: start: 20090801, end: 20090805
  2. CANCIDAS [Concomitant]
     Route: 041
     Dates: start: 20090731
  3. GENTAMICIN SULFATE [Concomitant]
     Route: 042
     Dates: start: 20090731
  4. VANCOMYCIN [Concomitant]
     Route: 042
     Dates: start: 20090728
  5. ACETAMINOPHEN [Concomitant]
     Route: 065
  6. MIDAZOLAM HYDROCHLORIDE [Concomitant]
     Route: 065
  7. SUFENTANIL [Concomitant]
     Route: 065
  8. ALLOPURINOL [Concomitant]
     Route: 065
  9. RACECADOTRIL [Concomitant]
     Route: 065
  10. AMIKACIN [Concomitant]
     Route: 065

REACTIONS (1)
  - ACUTE GENERALISED EXANTHEMATOUS PUSTULOSIS [None]
